FAERS Safety Report 6097742-1 (Version None)
Quarter: 2009Q1

REPORT INFORMATION
  Report Type: 
  Country: None (occurrence: None)
  Receive Date: 20090227
  Receipt Date: 20090223
  Transmission Date: 20090719
  Serious: Yes (Hospitalization)
  Sender: FDA-Public Use
  Company Number: US-GENENTECH-275199

PATIENT
  Sex: Female

DRUGS (11)
  1. AVASTIN [Suspect]
     Indication: ADENOCARCINOMA
     Dosage: 1000 MG, SINGLE
     Route: 042
     Dates: start: 20081211
  2. CAPECITABINE [Suspect]
     Indication: ADENOCARCINOMA
  3. CISPLATIN [Suspect]
     Indication: ADENOCARCINOMA
  4. EPIRUBICIN [Suspect]
     Indication: ADENOCARCINOMA
  5. ACETAMINOPHEN [Concomitant]
     Indication: DRUG USE FOR UNKNOWN INDICATION
  6. APREPITANT [Concomitant]
     Indication: DRUG USE FOR UNKNOWN INDICATION
  7. DEXAMETHASONE [Concomitant]
     Indication: DRUG USE FOR UNKNOWN INDICATION
  8. MAGIC MOUTHWASH (BENADRYL, CARAFATE, XYLOCAIN [Concomitant]
     Indication: DRUG USE FOR UNKNOWN INDICATION
  9. MANNITOL [Concomitant]
     Indication: DRUG USE FOR UNKNOWN INDICATION
  10. ONDANSETRON [Concomitant]
     Indication: DRUG USE FOR UNKNOWN INDICATION
  11. PANTOPRAZOLE [Concomitant]
     Indication: DRUG USE FOR UNKNOWN INDICATION

REACTIONS (1)
  - CHEST PAIN [None]
